FAERS Safety Report 4351655-1 (Version None)
Quarter: 2004Q2

REPORT INFORMATION
  Report Type: 
  Country: None (occurrence: None)
  Receive Date: 20040429
  Receipt Date: 20040305
  Transmission Date: 20050107
  Serious: No
  Sender: FDA-Public Use
  Company Number: 2004-114314-NL

PATIENT
  Age: 20 Year
  Sex: Female
  Weight: 55.5 kg

DRUGS (4)
  1. NUVARING [Suspect]
     Indication: CONTRACEPTION
     Dosage: DF DAILY VAGINAL
     Route: 067
     Dates: start: 20040119
  2. NUVARING [Suspect]
     Indication: MENSTRUATION IRREGULAR
     Dosage: DF DAILY VAGINAL
     Route: 067
     Dates: start: 20040119
  3. IRON [Concomitant]
  4. TYLENOL (CAPLET) [Concomitant]

REACTIONS (2)
  - BREAST TENDERNESS [None]
  - METRORRHAGIA [None]
